FAERS Safety Report 19779193 (Version 1)
Quarter: 2021Q3

REPORT INFORMATION
  Report Type: Spontaneous
  Country: FR (occurrence: FR)
  Receive Date: 20210902
  Receipt Date: 20210902
  Transmission Date: 20211014
  Serious: Yes (Hospitalization)
  Sender: FDA-Public Use
  Company Number: FR-TEVA-2021-FR-1947234

PATIENT
  Age: 75 Year
  Sex: Male
  Weight: 61.6 kg

DRUGS (8)
  1. SPIRONOLACTONE. [Suspect]
     Active Substance: SPIRONOLACTONE
     Indication: ASCITES
     Dosage: 75MG:UNIT DOSE:1DOSAGEFORM
     Route: 048
     Dates: start: 202106
  2. FUROSEMIDE. [Concomitant]
     Active Substance: FUROSEMIDE
  3. LANSOPRAZOLE. [Concomitant]
     Active Substance: LANSOPRAZOLE
  4. DUPHALAC 10 G, POUDRE ORALE OU POUR SOLUTION RECTALE EN POT [Concomitant]
     Dosage: FOR RECTAL SOLUTION IN A JAR
  5. LOVENOX [Concomitant]
     Active Substance: ENOXAPARIN SODIUM
  6. PROPRANOLOL [Concomitant]
     Active Substance: PROPRANOLOL HYDROCHLORIDE
  7. SERESTA 10 MG, COMPRIME [Concomitant]
     Active Substance: OXAZEPAM
  8. COMIRNATY [Concomitant]
     Active Substance: TOZINAMERAN
     Indication: COVID-19 IMMUNISATION
     Dosage: 1DOSAGEFORM
     Route: 030
     Dates: start: 202105

REACTIONS (1)
  - Limbic encephalitis [Not Recovered/Not Resolved]

NARRATIVE: CASE EVENT DATE: 20210723
